FAERS Safety Report 5698073-1 (Version None)
Quarter: 2008Q2

REPORT INFORMATION
  Report Type: 
  Country: None (occurrence: None)
  Receive Date: 20080408
  Receipt Date: 20080326
  Transmission Date: 20081010
  Serious: Yes (Other)
  Sender: FDA-Public Use
  Company Number: AU-ELI_LILLY_AND_COMPANY-AU200801007108

PATIENT
  Sex: Female

DRUGS (4)
  1. BYETTA [Suspect]
     Dosage: 5 UG, 2/D
     Route: 058
     Dates: start: 20080122, end: 20080310
  2. NOVOMIX /01475801/ [Concomitant]
     Dosage: UNK, UNKNOWN
     Dates: end: 20080121
  3. DIAMICRON [Concomitant]
     Dosage: UNK, UNKNOWN
  4. METFORMIN HCL [Concomitant]
     Dosage: UNK, UNKNOWN

REACTIONS (2)
  - CANDIDIASIS [None]
  - GLYCOSYLATED HAEMOGLOBIN INCREASED [None]
